FAERS Safety Report 6424253-3 (Version None)
Quarter: 2009Q4

REPORT INFORMATION
  Report Type: 
  Country: None (occurrence: None)
  Receive Date: 20091102
  Receipt Date: 20091022
  Transmission Date: 20100525
  Serious: Yes (Other)
  Sender: FDA-Public Use
  Company Number: GR-GENENTECH-293019

PATIENT
  Age: 38 Year

DRUGS (2)
  1. MABTHERA [Suspect]
     Indication: RENAL DISORDER
     Dosage: 375 MG/M2, 1/WEEK
     Route: 042
     Dates: start: 20030601
  2. CYCLOPHOSPHAMIDE [Concomitant]
     Indication: GLOMERULONEPHRITIS PROLIFERATIVE
     Route: 042

REACTIONS (1)
  - REVERSIBLE POSTERIOR LEUKOENCEPHALOPATHY SYNDROME [None]
